FAERS Safety Report 6862103-1 (Version None)
Quarter: 2010Q3

REPORT INFORMATION
  Report Type: 
  Country: None (occurrence: None)
  Receive Date: 20100721
  Receipt Date: 20100708
  Transmission Date: 20110219
  Serious: Yes (Hospitalization)
  Sender: FDA-Public Use
  Company Number: US-ELI_LILLY_AND_COMPANY-US201007003403

PATIENT
  Sex: Male

DRUGS (3)
  1. ZYPREXA [Suspect]
     Indication: SCHIZOPHRENIA
     Dosage: 20 MG, UNK
  2. ZYPREXA [Suspect]
     Dosage: 40 MG, UNK
  3. ZYPREXA [Suspect]
     Dosage: 20 MG, UNK

REACTIONS (2)
  - HALLUCINATION [None]
  - OVERDOSE [None]
